FAERS Safety Report 6728394-2 (Version None)
Quarter: 2010Q2

REPORT INFORMATION
  Report Type: 
  Country: None (occurrence: None)
  Receive Date: 20100512
  Receipt Date: 20100430
  Transmission Date: 20101027
  Serious: Yes (Disabling)
  Sender: FDA-Public Use
  Company Number: 7003399

PATIENT
  Age: 48 Year
  Sex: Male

DRUGS (4)
  1. REBIF [Suspect]
     Indication: MULTIPLE SCLEROSIS
     Dosage: 44 MCG, 3 IN 1 WK, SUBCUTANEOUS
     Route: 058
     Dates: start: 20070614
  2. PAIN MEDICATION (ALL OTHER THERAPEUTIC PRODUCTS) [Concomitant]
  3. CARDIAC PILLS (ALL OTHER THERAPEUTIC PRODUCTS) [Concomitant]
  4. BLADDER PILLS (ALL OTHER THERAPEUTIC PRODUCTS) [Concomitant]

REACTIONS (2)
  - CONDITION AGGRAVATED [None]
  - MULTIPLE SCLEROSIS [None]
